FAERS Safety Report 8417155-4 (Version None)
Quarter: 2012Q2

REPORT INFORMATION
  Report Type: 
  Country: None (occurrence: None)
  Receive Date: 20120606
  Receipt Date: 20120521
  Transmission Date: 20120825
  Serious: Yes (Hospitalization)
  Sender: FDA-Public Use
  Company Number: IT-SP-2012-05707

PATIENT
  Age: 66 Year
  Sex: Male

DRUGS (1)
  1. IMMUCYST [Suspect]
     Indication: BLADDER CANCER
     Route: 043

REACTIONS (5)
  - PNEUMONIA [None]
  - BOVINE TUBERCULOSIS [None]
  - ACUTE RESPIRATORY FAILURE [None]
  - PYREXIA [None]
  - DYSURIA [None]
